FAERS Safety Report 10017187 (Version 4)
Quarter: 2014Q3

REPORT INFORMATION
  Report Type: Spontaneous
  Country: FR (occurrence: FR)
  Receive Date: 20140318
  Receipt Date: 20140711
  Transmission Date: 20150326
  Serious: Yes (Death, Hospitalization, Other)
  Sender: FDA-Public Use
  Company Number: FR-009507513-1403FRA008244

PATIENT
  Age: 71 Year
  Sex: Male
  Weight: 70 kg

DRUGS (20)
  1. IZILOX [Suspect]
     Active Substance: MOXIFLOXACIN HYDROCHLORIDE
     Indication: INFLAMMATION
     Dosage: 400 MG, QD
     Route: 048
     Dates: start: 20131008, end: 20131027
  2. MYAMBUTOL [Suspect]
     Active Substance: ETHAMBUTOL HYDROCHLORIDE
     Indication: PYREXIA
  3. MYAMBUTOL [Suspect]
     Active Substance: ETHAMBUTOL HYDROCHLORIDE
     Indication: INFLAMMATION
     Dosage: 400 MG, TID
     Route: 048
     Dates: start: 20131008, end: 20131027
  4. ABSTRAL [Suspect]
     Active Substance: FENTANYL CITRATE
     Indication: PAIN
  5. IZILOX [Suspect]
     Active Substance: MOXIFLOXACIN HYDROCHLORIDE
     Indication: ATYPICAL MYCOBACTERIAL INFECTION
  6. DUROGESIC [Suspect]
     Active Substance: FENTANYL
     Indication: SCIATICA
     Dosage: 100 MG, TID
     Route: 062
     Dates: start: 20131008, end: 20131027
  7. DUROGESIC [Suspect]
     Active Substance: FENTANYL
     Indication: PAIN
  8. MECIR [Suspect]
     Active Substance: TAMSULOSIN HYDROCHLORIDE
     Indication: RENAL FAILURE CHRONIC
     Dosage: 0.4 MG, QD
     Route: 048
     Dates: start: 20131008, end: 20131027
  9. FORLAX [Concomitant]
     Active Substance: POLYETHYLENE GLYCOL 4000
     Indication: CONSTIPATION
     Dosage: 10 G, BID
     Route: 048
     Dates: start: 20131008, end: 20131027
  10. IZILOX [Suspect]
     Active Substance: MOXIFLOXACIN HYDROCHLORIDE
     Indication: PYREXIA
  11. MYAMBUTOL [Suspect]
     Active Substance: ETHAMBUTOL HYDROCHLORIDE
     Indication: ATYPICAL MYCOBACTERIAL INFECTION
  12. ZECLAR [Suspect]
     Active Substance: CLARITHROMYCIN
     Indication: ATYPICAL MYCOBACTERIAL INFECTION
  13. ABSTRAL [Suspect]
     Active Substance: FENTANYL CITRATE
     Indication: SCIATICA
     Dosage: 300 MG, QID
     Route: 060
     Dates: start: 20131008, end: 20131027
  14. ZECLAR [Suspect]
     Active Substance: CLARITHROMYCIN
     Indication: INFLAMMATION
     Dosage: 500 MG, BID
     Route: 048
     Dates: start: 20131008, end: 20131027
  15. VERSATIS [Suspect]
     Active Substance: LIDOCAINE
     Indication: PAIN
     Dosage: 1 DF, 12H/24H
     Route: 061
     Dates: start: 20131008, end: 20131027
  16. INTELENCE [Suspect]
     Active Substance: ETRAVIRINE
     Indication: HIV INFECTION
     Dosage: 200 MG, BID
     Route: 048
     Dates: start: 20060308, end: 20131027
  17. LAROXYL [Suspect]
     Active Substance: AMITRIPTYLINE
     Indication: NEUROPATHY PERIPHERAL
     Dosage: 75 MG, QD
     Route: 048
     Dates: start: 20131008, end: 20131027
  18. ZECLAR [Suspect]
     Active Substance: CLARITHROMYCIN
     Indication: PYREXIA
  19. ISENTRESS [Suspect]
     Active Substance: RALTEGRAVIR POTASSIUM
     Indication: HIV INFECTION
     Dosage: 400 MG, BID
     Route: 048
     Dates: start: 20070115, end: 20131027
  20. KARDEGIC [Suspect]
     Active Substance: ASPIRIN LYSINE
     Indication: HYPERTENSION
     Dosage: 160 MG, QD
     Route: 048
     Dates: start: 20080908, end: 20131027

REACTIONS (9)
  - Cardio-respiratory arrest [Fatal]
  - Acute pulmonary oedema [Not Recovered/Not Resolved]
  - Multi-organ failure [Not Recovered/Not Resolved]
  - Respiratory distress [Not Recovered/Not Resolved]
  - Myocardial infarction [Fatal]
  - Cardiac failure [Fatal]
  - Septic shock [Fatal]
  - Myocarditis [Fatal]
  - Lung disorder [Not Recovered/Not Resolved]

NARRATIVE: CASE EVENT DATE: 20131028
